FAERS Safety Report 10832082 (Version 2)
Quarter: 2015Q1

REPORT INFORMATION
  Report Type: Spontaneous
  Country: GB (occurrence: GB)
  Receive Date: 20150219
  Receipt Date: 20150219
  Transmission Date: 20150721
  Serious: Yes (Other)
  Sender: FDA-Public Use
  Company Number: GB-ACTAVISPR-2015-02234

PATIENT
  Age: 40 Year
  Sex: Male

DRUGS (2)
  1. DICLOFENAC (UNKNOWN) [Suspect]
     Active Substance: DICLOFENAC SODIUM
     Indication: PSORIATIC ARTHROPATHY
     Dosage: 50 MG, TID
     Route: 065
  2. DEPOMEDRONE [Concomitant]
     Active Substance: METHYLPREDNISOLONE ACETATE
     Indication: PSORIATIC ARTHROPATHY
     Dosage: UNK, SINGLE
     Route: 014

REACTIONS (1)
  - Pseudoporphyria [Recovered/Resolved]
